FAERS Safety Report 9463911 (Version 2)
Quarter: 2013Q3

REPORT INFORMATION
  Report Type: Spontaneous
  Country: ES (occurrence: ES)
  Receive Date: 20130819
  Receipt Date: 20130819
  Transmission Date: 20140515
  Serious: Yes (Death)
  Sender: FDA-Public Use
  Company Number: ES-RANBAXY-2006US-01838

PATIENT
  Age: 30 Year
  Sex: Male
  Weight: 73 kg

DRUGS (8)
  1. MIDAZOLAM [Suspect]
     Indication: ANAESTHESIA
     Route: 065
  2. ATRACURIUM [Suspect]
     Indication: PRODUCT USED FOR UNKNOWN INDICATION
     Route: 065
  3. ATRACURIUM [Suspect]
     Indication: ENDOTRACHEAL INTUBATION
     Route: 065
  4. LIDOCAINE [Suspect]
     Indication: PRODUCT USED FOR UNKNOWN INDICATION
     Route: 065
  5. PROPOFOL [Suspect]
     Indication: PRODUCT USED FOR UNKNOWN INDICATION
     Route: 065
  6. SEVOFLU?RANE [Suspect]
     Indication: PRODUCT USED FOR UNKNOWN INDICATION
     Route: 005
  7. FENTANYL [Concomitant]
     Indication: PRODUCT USED FOR UNKNOWN INDICATION
     Route: 065
  8. HYDROCORTISONE [Concomitant]
     Indication: PRODUCT USED FOR UNKNOWN INDICATION
     Route: 042

REACTIONS (1)
  - Anaphylactic reaction [Fatal]
